FAERS Safety Report 8200301-5 (Version None)
Quarter: 2012Q1

REPORT INFORMATION
  Report Type: 
  Country: None (occurrence: None)
  Receive Date: 20120312
  Receipt Date: 20120306
  Transmission Date: 20120608
  Serious: Yes (Other)
  Sender: FDA-Public Use
  Company Number: US-BAYER-200829312NA

PATIENT
  Age: 67 Year
  Sex: Female
  Weight: 53.636 kg

DRUGS (29)
  1. COREG [Concomitant]
  2. LOTENSIN [Concomitant]
  3. LISINOPRILHYDROCHLOROTHIAZIDE RATIOPHARM [Concomitant]
  4. SYMBICORT [Concomitant]
  5. OMNISCAN [Suspect]
     Indication: PRODUCT USED FOR UNKNOWN INDICATION
  6. ADVAIR DISKUS 100/50 [Concomitant]
  7. LIPITOR [Concomitant]
  8. MAGNEVIST [Suspect]
     Indication: NUCLEAR MAGNETIC RESONANCE IMAGING
     Dosage: 40 ML, ONCE
     Dates: start: 20041116, end: 20041116
  9. ALLEGRA [Concomitant]
  10. FLOVENT [Concomitant]
  11. PHENTERMINE [Concomitant]
  12. NIFEDIAC CC [Concomitant]
  13. LORAZEPAM [Concomitant]
  14. LASIX [Concomitant]
  15. PREDNISONE [Concomitant]
  16. ALBUTEROL [Concomitant]
  17. NEXIUM [Concomitant]
  18. PROHANCE [Suspect]
     Indication: PRODUCT USED FOR UNKNOWN INDICATION
  19. METOPROLOL SUCCINATE [Concomitant]
  20. ASPIRIN [Concomitant]
  21. MULTIHANCE [Suspect]
     Indication: PRODUCT USED FOR UNKNOWN INDICATION
  22. ALUPENT [Concomitant]
  23. XYZAL [Concomitant]
  24. CHANTIX [Concomitant]
  25. OPTIMARK [Suspect]
     Indication: PRODUCT USED FOR UNKNOWN INDICATION
  26. ALTACE [Concomitant]
  27. LANOXIN [Concomitant]
  28. SPIRIVA [Concomitant]
  29. LEVOFLOXACIN [Concomitant]

REACTIONS (9)
  - MOBILITY DECREASED [None]
  - EMOTIONAL DISTRESS [None]
  - PAIN IN EXTREMITY [None]
  - ANXIETY [None]
  - PRURITUS GENERALISED [None]
  - PAIN [None]
  - NEPHROGENIC SYSTEMIC FIBROSIS [None]
  - INJURY [None]
  - GENERAL PHYSICAL HEALTH DETERIORATION [None]
